FAERS Safety Report 20048473 (Version 2)
Quarter: 2022Q2

REPORT INFORMATION
  Report Type: Spontaneous
  Country: US (occurrence: US)
  Receive Date: 20211109
  Receipt Date: 20220428
  Transmission Date: 20220720
  Serious: No
  Sender: FDA-Public Use
  Company Number: US-PFIZER INC-202101472272

PATIENT
  Age: 79 Year
  Sex: Female
  Weight: 50.8 kg

DRUGS (2)
  1. CHANTIX [Suspect]
     Active Substance: VARENICLINE TARTRATE
     Indication: Smoking cessation therapy
     Dosage: 0.5 MG, 2X/DAY (HALF TABLET OF 1MG)
     Route: 048
     Dates: start: 2021
  2. CHANTIX [Suspect]
     Active Substance: VARENICLINE TARTRATE
     Dosage: 1 MG (FULL TABLET)

REACTIONS (5)
  - Illness [Unknown]
  - Gastritis bacterial [Unknown]
  - Abdominal discomfort [Not Recovered/Not Resolved]
  - Hypersensitivity [Unknown]
  - Recalled product administered [Unknown]

NARRATIVE: CASE EVENT DATE: 20210101
